FAERS Safety Report 9262576 (Version 1)
Quarter: 2013Q2

REPORT INFORMATION
  Report Type: Spontaneous
  Country: GB (occurrence: None)
  Receive Date: 20130425
  Receipt Date: 20130425
  Transmission Date: 20140414
  Serious: Yes (Other)
  Sender: FDA-Public Use
  Company Number: 2013ST000077

PATIENT
  Age: 43 Year
  Sex: Male

DRUGS (1)
  1. ZEGERID [Suspect]
     Indication: PEPTIC ULCER
     Route: 048

REACTIONS (7)
  - Loss of consciousness [None]
  - Posture abnormal [None]
  - Thirst [None]
  - Restlessness [None]
  - Agitation [None]
  - Dry mouth [None]
  - Dysphagia [None]
